FAERS Safety Report 7055276-1 (Version None)
Quarter: 2010Q4

REPORT INFORMATION
  Report Type: 
  Country: None (occurrence: None)
  Receive Date: 20101021
  Receipt Date: 20101013
  Transmission Date: 20110411
  Serious: Yes (Other)
  Sender: FDA-Public Use
  Company Number: CA-JNJFOC-20101004268

PATIENT
  Age: 75 Year
  Sex: Female
  Weight: 74 kg

DRUGS (7)
  1. CAELYX [Suspect]
     Indication: PRODUCT USED FOR UNKNOWN INDICATION
     Route: 042
  2. DEXAMETHASONE [Concomitant]
     Route: 042
  3. DOCUSATE SODIUM [Concomitant]
     Route: 048
  4. ONDANSETRON [Concomitant]
     Route: 065
  5. PANTOLOC [Concomitant]
     Route: 048
  6. TYLENOL-500 [Concomitant]
     Route: 048
  7. TYLENOL WITH CODEINE NUMBER 3 [Concomitant]
     Route: 048

REACTIONS (3)
  - DYSPNOEA [None]
  - GENERALISED ERYTHEMA [None]
  - THROAT TIGHTNESS [None]
